FAERS Safety Report 21921114 (Version 1)
Quarter: 2023Q1

REPORT INFORMATION
  Report Type: Spontaneous
  Country: US (occurrence: US)
  Receive Date: 20230127
  Receipt Date: 20230127
  Transmission Date: 20230417
  Serious: No
  Sender: FDA-Public Use
  Company Number: US-GLAXOSMITHKLINE-USCH2023003625

PATIENT
  Age: 47 Year

DRUGS (1)
  1. ALLI [Suspect]
     Active Substance: ORLISTAT
     Indication: Product used for unknown indication
     Dosage: UNK
     Dates: end: 20230123

REACTIONS (4)
  - Illness [Recovering/Resolving]
  - Nausea [Recovering/Resolving]
  - Nervousness [Recovering/Resolving]
  - Drug ineffective [Unknown]
